FAERS Safety Report 4273685-0 (Version None)
Quarter: 2004Q1

REPORT INFORMATION
  Report Type: 
  Country: None (occurrence: None)
  Receive Date: 20040119
  Receipt Date: 20030626
  Transmission Date: 20041129
  Serious: Yes (Other)
  Sender: FDA-Public Use
  Company Number: BR-ROCHE-341079

PATIENT
  Sex: Male

DRUGS (1)
  1. NEOTIGASON [Suspect]
     Indication: PSORIASIS
     Dates: start: 19980615, end: 20021215

REACTIONS (5)
  - CAESAREAN SECTION [None]
  - LIVE BIRTH [None]
  - NO ADVERSE EFFECT [None]
  - PREGNANCY [None]
  - PREMATURE BABY [None]
